FAERS Safety Report 4386228-8 (Version None)
Quarter: 2004Q2

REPORT INFORMATION
  Report Type: 
  Country: None (occurrence: None)
  Receive Date: 20040628
  Receipt Date: 20040628
  Transmission Date: 20050107
  Serious: Yes (Hospitalization)
  Sender: FDA-Public Use
  Company Number: None

PATIENT
  Age: 71 Year
  Sex: Male
  Weight: 71 kg

DRUGS (8)
  1. ROSIGLITAZONE 2MG [Suspect]
     Indication: DIABETES MELLITUS
     Dosage: 2MG PO QD
     Route: 048
     Dates: start: 20040323, end: 20040413
  2. METFORMIN [Concomitant]
  3. IBUPROFEN [Concomitant]
  4. .. [Concomitant]
  5. HYDRALAZINE [Concomitant]
  6. GEMFIBROZIL [Concomitant]
  7. LISINOPRIL [Concomitant]
  8. SIMVASTATIN [Concomitant]

REACTIONS (3)
  - CARDIAC FAILURE CONGESTIVE [None]
  - OEDEMA PERIPHERAL [None]
  - SCROTAL OEDEMA [None]
